FAERS Safety Report 7295825-1 (Version None)
Quarter: 2011Q1

REPORT INFORMATION
  Report Type: 
  Country: None (occurrence: None)
  Receive Date: 20110207
  Receipt Date: 20110126
  Transmission Date: 20110831
  Serious: Yes (Life-Threatening, Disabling, Other)
  Sender: FDA-Public Use
  Company Number: TAJPN-10-0704

PATIENT
  Age: 64 Year
  Sex: Female
  Weight: 118 kg

DRUGS (6)
  1. ABRAXANE [Suspect]
     Indication: BREAST CANCER
     Dosage: (400 MG)
     Dates: start: 20101008, end: 20101008
  2. DECADRON [Concomitant]
  3. KYTRIL [Concomitant]
  4. GASTER (FAMOTIDINE) [Concomitant]
  5. DAONIL (GLIBENCLAMIDE) [Suspect]
     Indication: DIABETES MELLITUS
     Dosage: (1.25 MG),ORAL
     Route: 048
  6. HERCEPTIN [Concomitant]

REACTIONS (6)
  - HYPOGLYCAEMIA [None]
  - HAEMOGLOBIN DECREASED [None]
  - BLOOD UREA INCREASED [None]
  - BLOOD GLUCOSE INCREASED [None]
  - GLYCOSYLATED HAEMOGLOBIN INCREASED [None]
  - BLOOD CREATININE INCREASED [None]
